FAERS Safety Report 4717107-1 (Version None)
Quarter: 2005Q3

REPORT INFORMATION
  Report Type: 
  Country: None (occurrence: None)
  Receive Date: 20050719
  Receipt Date: 20050708
  Transmission Date: 20060218
  Serious: Yes (Hospitalization)
  Sender: FDA-Public Use
  Company Number: FR-BRISTOL-MYERS SQUIBB COMPANY-13035357

PATIENT
  Age: 79 Year
  Sex: Female

DRUGS (6)
  1. FOZITEC TABS 10 MG [Suspect]
     Indication: ESSENTIAL HYPERTENSION
     Route: 048
     Dates: start: 20050415, end: 20050509
  2. FUROSEMIDE [Suspect]
     Indication: ESSENTIAL HYPERTENSION
     Route: 048
     Dates: start: 20050415, end: 20050509
  3. ENALAPRIL MALEATE [Suspect]
     Indication: ESSENTIAL HYPERTENSION
     Route: 048
     Dates: start: 20050415, end: 20050509
  4. POTASSIUM CHLORIDE [Suspect]
     Route: 048
  5. EPINITRIL [Concomitant]
     Route: 048
  6. KARDEGIC [Concomitant]
     Dosage: 160 MG POWDER FOR ORAL SOLUTION
     Route: 048

REACTIONS (5)
  - DEHYDRATION [None]
  - HYPERKALAEMIA [None]
  - KLEBSIELLA INFECTION [None]
  - RENAL FAILURE ACUTE [None]
  - URINARY TRACT INFECTION BACTERIAL [None]
